FAERS Safety Report 5811786-3 (Version None)
Quarter: 2008Q3

REPORT INFORMATION
  Report Type: 
  Country: None (occurrence: None)
  Receive Date: 20080714
  Receipt Date: 20080710
  Transmission Date: 20090109
  Serious: Yes (Life-Threatening, Hospitalization)
  Sender: FDA-Public Use
  Company Number: 2008-02505

PATIENT
  Age: 65 Year
  Sex: Male
  Weight: 54 kg

DRUGS (6)
  1. VELCADE [Suspect]
     Indication: MULTIPLE MYELOMA
     Dates: start: 20060309, end: 20060601
  2. DEXAMETHASONE TAB [Suspect]
     Indication: MULTIPLE MYELOMA
     Dosage: 40 MG, ORAL; 40 MG, ORAL
     Route: 048
     Dates: start: 20060309, end: 20060601
  3. DEXAMETHASONE TAB [Suspect]
     Indication: MULTIPLE MYELOMA
     Dosage: 40 MG, ORAL; 40 MG, ORAL
     Route: 048
     Dates: start: 20060809, end: 20060812
  4. CYCLOPHOSPHAMIDE [Suspect]
     Indication: MULTIPLE MYELOMA
     Dosage: 400 MG/M2, INTRAVENOUS
     Route: 042
     Dates: start: 20060809, end: 20060812
  5. ETOPOSIDE [Suspect]
     Indication: MULTIPLE MYELOMA
     Dosage: 40 MG/M2, INTRAVENOUS
     Route: 042
     Dates: start: 20060809, end: 20060812
  6. CISPLATIN [Suspect]
     Indication: MULTIPLE MYELOMA
     Dosage: 15 MG/M2, INTRAVENOUS
     Route: 042
     Dates: start: 20060809, end: 20060812

REACTIONS (5)
  - DISEASE COMPLICATION [None]
  - HYPERCALCAEMIA [None]
  - HYPERURICAEMIA [None]
  - HYPERVISCOSITY SYNDROME [None]
  - MULTIPLE MYELOMA [None]
